FAERS Safety Report 21448836 (Version 2)
Quarter: 2022Q4

REPORT INFORMATION
  Report Type: Spontaneous
  Country: AT (occurrence: AT)
  Receive Date: 20221013
  Receipt Date: 20221117
  Transmission Date: 20230113
  Serious: Yes (Other)
  Sender: FDA-Public Use
  Company Number: AT-LEO Pharma-346009

PATIENT
  Age: 67 Year
  Sex: Female

DRUGS (1)
  1. BRODALUMAB [Suspect]
     Active Substance: BRODALUMAB
     Indication: Nail psoriasis
     Route: 065
     Dates: start: 202206

REACTIONS (4)
  - Cardiac disorder [Unknown]
  - Psoriasis [Recovered/Resolved]
  - Candida infection [Recovered/Resolved]
  - Therapy interrupted [Unknown]
